FAERS Safety Report 25203244 (Version 5)
Quarter: 2025Q3

REPORT INFORMATION
  Report Type: Report from Study
  Country: US (occurrence: US)
  Receive Date: 20250416
  Receipt Date: 20250707
  Transmission Date: 20251021
  Serious: Yes (Other)
  Sender: NOVARTIS
  Company Number: US-002147023-NVSC2025US001141

PATIENT
  Age: 59 Year
  Sex: Female

DRUGS (1)
  1. KESIMPTA [Suspect]
     Active Substance: OFATUMUMAB
     Indication: Relapsing multiple sclerosis
     Dosage: 20 MG, QMO
     Route: 058
     Dates: start: 20241204

REACTIONS (20)
  - Loss of consciousness [Not Recovered/Not Resolved]
  - Seizure [Not Recovered/Not Resolved]
  - Erythema [Unknown]
  - Rash macular [Unknown]
  - Skin fissures [Unknown]
  - Blister [Not Recovered/Not Resolved]
  - Scar [Unknown]
  - Rash [Not Recovered/Not Resolved]
  - Nasopharyngitis [Not Recovered/Not Resolved]
  - Productive cough [Not Recovered/Not Resolved]
  - Fatigue [Unknown]
  - Rhinorrhoea [Unknown]
  - Nasal discharge discolouration [Unknown]
  - Depression [Not Recovered/Not Resolved]
  - Dizziness [Not Recovered/Not Resolved]
  - Clumsiness [Not Recovered/Not Resolved]
  - Balance disorder [Unknown]
  - Therapeutic response shortened [Unknown]
  - Stress [Unknown]
  - Aggression [Unknown]

NARRATIVE: CASE EVENT DATE: 20241226
